FAERS Safety Report 17198320 (Version 1)
Quarter: 2019Q4

REPORT INFORMATION
  Report Type: Spontaneous
  Country: US (occurrence: US)
  Receive Date: 20191225
  Receipt Date: 20191225
  Transmission Date: 20200122
  Serious: Yes (Other)
  Sender: FDA-Public Use
  Company Number: US-IPSEN BIOPHARMACEUTICALS, INC.-2019-25924

PATIENT
  Age: 8 Year
  Sex: Male
  Weight: 26 kg

DRUGS (18)
  1. CLONIDINE. [Concomitant]
     Active Substance: CLONIDINE
  2. ATROVENT [Concomitant]
     Active Substance: IPRATROPIUM BROMIDE
  3. KEPPRA [Concomitant]
     Active Substance: LEVETIRACETAM
  4. ALBUTEROL. [Concomitant]
     Active Substance: ALBUTEROL
  5. TUSSIN [Concomitant]
     Active Substance: GUAIFENESIN
  6. VIMPAT [Concomitant]
     Active Substance: LACOSAMIDE
  7. NYSTATIN. [Concomitant]
     Active Substance: NYSTATIN
  8. MAPAP [Concomitant]
     Active Substance: ACETAMINOPHEN
  9. KLONOPIN [Concomitant]
     Active Substance: CLONAZEPAM
  10. DYSPORT [Suspect]
     Active Substance: ABOBOTULINUMTOXINA
     Indication: OFF LABEL USE
  11. PEPCID [Concomitant]
     Active Substance: FAMOTIDINE
  12. MYLANTA [Concomitant]
     Active Substance: ALUMINUM HYDROXIDE\DIMETHICONE\MAGNESIUM HYDROXIDE
  13. BENADRYL [Concomitant]
     Active Substance: DIPHENHYDRAMINE HYDROCHLORIDE
  14. MULTIVITAMIN [Concomitant]
     Active Substance: VITAMINS
  15. DYSPORT [Suspect]
     Active Substance: ABOBOTULINUMTOXINA
     Indication: MUSCLE SPASTICITY
     Dosage: 600 IU (BILATERAL PECS- 60 IU EACH, BILAT TERES MAJOR-60 IU EACH, BILAT HIP ABDUCTORS-140 IU EACH AN
     Route: 030
     Dates: start: 20190821, end: 20190821
  16. DIAZEPAM. [Concomitant]
     Active Substance: DIAZEPAM
  17. BACTROBAN [Concomitant]
     Active Substance: MUPIROCIN\MUPIROCIN CALCIUM
  18. VERSED [Concomitant]
     Active Substance: MIDAZOLAM HYDROCHLORIDE

REACTIONS (3)
  - Seizure [Unknown]
  - Drug ineffective [Unknown]
  - Off label use [Unknown]

NARRATIVE: CASE EVENT DATE: 20190821
